FAERS Safety Report 9109418 (Version 4)
Quarter: 2013Q1

REPORT INFORMATION
  Report Type: Spontaneous
  Country: PY (occurrence: PY)
  Receive Date: 20130222
  Receipt Date: 20130327
  Transmission Date: 20140127
  Serious: Yes (Other)
  Sender: FDA-Public Use
  Company Number: PHHY2013PY012180

PATIENT
  Sex: Male

DRUGS (3)
  1. GLIVEC [Suspect]
     Indication: CHRONIC MYELOID LEUKAEMIA
     Dosage: 400 MG,
     Route: 048
     Dates: start: 20031128
  2. GLIVEC [Suspect]
     Dosage: 600 MG
     Route: 048
  3. GLIVEC [Suspect]
     Dosage: 800 MG
     Route: 048
     Dates: start: 20121210

REACTIONS (6)
  - Myelocytosis [Unknown]
  - General physical health deterioration [Unknown]
  - Chronic myeloid leukaemia transformation [Unknown]
  - Splenomegaly [Unknown]
  - Therapeutic response decreased [Unknown]
  - Drug ineffective [Unknown]
